FAERS Safety Report 15221052 (Version 2)
Quarter: 2018Q3

REPORT INFORMATION
  Report Type: Spontaneous
  Country: US (occurrence: US)
  Receive Date: 20180731
  Receipt Date: 20180903
  Transmission Date: 20181010
  Serious: No
  Sender: FDA-Public Use
  Company Number: US-ASTRAZENECA-2018SE87947

PATIENT
  Sex: Female
  Weight: 64.4 kg

DRUGS (4)
  1. SYMBICORT [Suspect]
     Active Substance: BUDESONIDE\FORMOTEROL FUMARATE DIHYDRATE
     Indication: ASTHMA
     Dosage: 80/4.5 MCG, 2 PUFFS TWICE A WEEK
     Route: 055
     Dates: start: 1998, end: 2006
  2. PREDNISONE. [Concomitant]
     Active Substance: PREDNISONE
     Indication: ASTHMA
     Route: 048
     Dates: start: 20180703
  3. SYMBICORT [Suspect]
     Active Substance: BUDESONIDE\FORMOTEROL FUMARATE DIHYDRATE
     Indication: ASTHMA
     Dosage: 80/4.5 MCG, TWO TIMES A DAY
     Route: 055
     Dates: start: 20180703
  4. PROAIR HFA [Concomitant]
     Active Substance: ALBUTEROL SULFATE
     Dosage: AS REQUIRED
     Route: 065

REACTIONS (9)
  - Asthma [Not Recovered/Not Resolved]
  - Product use issue [Not Recovered/Not Resolved]
  - Sinusitis [Unknown]
  - Malaise [Unknown]
  - Cough [Unknown]
  - Drug dose omission [Not Recovered/Not Resolved]
  - Device failure [Unknown]
  - Hypersensitivity [Not Recovered/Not Resolved]
  - Device malfunction [Unknown]
